FAERS Safety Report 14707533 (Version 1)
Quarter: 2018Q2

REPORT INFORMATION
  Report Type: Report from Study
  Country: CO (occurrence: CO)
  Receive Date: 20180403
  Receipt Date: 20180403
  Transmission Date: 20180711
  Serious: Yes (Other)
  Sender: FDA-Public Use
  Company Number: CO-EMD SERONO-E2B_90000762

PATIENT
  Age: 7 Year
  Sex: Female

DRUGS (2)
  1. ACETAMINOPHEN. [Concomitant]
     Active Substance: ACETAMINOPHEN
     Indication: PAIN
  2. SAIZEN [Suspect]
     Active Substance: SOMATROPIN
     Indication: BODY HEIGHT BELOW NORMAL
     Route: 058
     Dates: start: 20121016

REACTIONS (3)
  - Bone pain [Recovering/Resolving]
  - Off label use [Unknown]
  - Menarche [Unknown]

NARRATIVE: CASE EVENT DATE: 20121016
